FAERS Safety Report 9601002 (Version 2)
Quarter: 2013Q4

REPORT INFORMATION
  Report Type: Spontaneous
  Country: US (occurrence: US)
  Receive Date: 20131004
  Receipt Date: 20131004
  Transmission Date: 20140711
  Serious: No
  Sender: FDA-Public Use
  Company Number: US-AMGEN-USASP2013036372

PATIENT
  Age: 58 Year
  Sex: Male
  Weight: 80.73 kg

DRUGS (6)
  1. ENBREL [Suspect]
     Indication: PRODUCT USED FOR UNKNOWN INDICATION
     Dosage: 50 MG, QWK
     Route: 058
  2. BUSPAR [Concomitant]
     Dosage: 10 MG, UNK
  3. CELEXA                             /00582602/ [Concomitant]
     Dosage: 10 MG, UNK
  4. MULTIVITAMINS, PLAIN [Concomitant]
     Dosage: UNK
  5. FISH OIL [Concomitant]
     Dosage: UNK
  6. GINGER                             /01646602/ [Concomitant]
     Dosage: UNK

REACTIONS (7)
  - Night sweats [Unknown]
  - Rash papular [Unknown]
  - Injection site reaction [Recovering/Resolving]
  - Injection site induration [Unknown]
  - Injection site erythema [Recovering/Resolving]
  - Injection site warmth [Unknown]
  - Injection site swelling [Recovering/Resolving]
